FAERS Safety Report 8554423-X (Version None)
Quarter: 2012Q3

REPORT INFORMATION
  Report Type: 
  Country: None (occurrence: None)
  Receive Date: 20120731
  Receipt Date: 20120723
  Transmission Date: 20120928
  Serious: Yes (Other)
  Sender: FDA-Public Use
  Company Number: US-009507513-1207USA009821

PATIENT

DRUGS (7)
  1. LIPITOR [Suspect]
     Dosage: 20 MG, QD
     Route: 048
  2. LIPITOR [Suspect]
     Dosage: 40 MG, QD
     Route: 048
  3. METOPROLOL TARTRATE [Concomitant]
     Dosage: 12.5 MG, QD
     Route: 048
  4. ZOCOR [Suspect]
     Dosage: UNK, QD
     Route: 048
  5. CHONDROITIN SULFATE SODIUM (+) GLUCOSAMINE HYDROCHLORIDE [Concomitant]
     Dosage: 500/1200 MG
     Route: 048
  6. MEVACOR [Suspect]
     Dosage: UNK, QD
  7. OMEPRAZOLE [Concomitant]
     Dosage: 20 MG, QD
     Route: 048

REACTIONS (4)
  - MUSCLE SPASMS [None]
  - HEPATIC ENZYME INCREASED [None]
  - HAEMOLYTIC ANAEMIA [None]
  - AUTOIMMUNE DISORDER [None]
